FAERS Safety Report 17766604 (Version 3)
Quarter: 2021Q1

REPORT INFORMATION
  Report Type: Spontaneous
  Country: US (occurrence: US)
  Receive Date: 20200511
  Receipt Date: 20210216
  Transmission Date: 20210419
  Serious: No
  Sender: FDA-Public Use
  Company Number: US-VERTEX PHARMACEUTICALS-2020-010172

PATIENT
  Age: 59 Year
  Sex: Male

DRUGS (19)
  1. TRIKAFTA [Suspect]
     Active Substance: ELEXACAFTOR\IVACAFTOR\TEZACAFTOR
     Indication: CYSTIC FIBROSIS
     Dosage: 2 TABS (100 MG ELEXACAFTOR/50 MG TEZACAFTOR/75 MG IVACAFTOR) AM AND 1 TAB (150 MG IVACAFTOR) PM
     Route: 048
     Dates: start: 20200306, end: 2020
  2. LISINOPRIL. [Concomitant]
     Active Substance: LISINOPRIL
  3. COLISTIMETHATE [COLISTIMETHATE SODIUM] [Concomitant]
     Active Substance: COLISTIMETHATE SODIUM
  4. PAROXETINE. [Concomitant]
     Active Substance: PAROXETINE
  5. BUDESONIDE. [Concomitant]
     Active Substance: BUDESONIDE
  6. ATORVASTATIN [Concomitant]
     Active Substance: ATORVASTATIN
  7. ALBUTEROL [SALBUTAMOL] [Concomitant]
     Active Substance: ALBUTEROL
  8. PULMOZYME [Concomitant]
     Active Substance: DORNASE ALFA
  9. CULTURELLE [Concomitant]
     Active Substance: LACTOBACILLUS RHAMNOSUS
  10. TRIKAFTA [Suspect]
     Active Substance: ELEXACAFTOR\IVACAFTOR\TEZACAFTOR
     Dosage: (100 MG ELEXACAFTOR/ 50 MG TEZACAFTOR/ 75 MG IVACAFTOR; 150MG IVACAFTOR) FREQ UNK
     Route: 048
     Dates: start: 20200803
  11. FLUTICASONE. [Concomitant]
     Active Substance: FLUTICASONE
  12. CREON [Concomitant]
     Active Substance: PANCRELIPASE AMYLASE\PANCRELIPASE LIPASE\PANCRELIPASE PROTEASE
  13. EPINEPHRINE. [Concomitant]
     Active Substance: EPINEPHRINE
  14. ADVAIR HFA [Concomitant]
     Active Substance: FLUTICASONE PROPIONATE\SALMETEROL XINAFOATE
  15. LORATADINE. [Concomitant]
     Active Substance: LORATADINE
  16. ESZOPICLONE. [Concomitant]
     Active Substance: ESZOPICLONE
  17. LANSOPRAZOLE. [Concomitant]
     Active Substance: LANSOPRAZOLE
  18. TRAMADOL. [Concomitant]
     Active Substance: TRAMADOL
  19. CAYSTON [Concomitant]
     Active Substance: AZTREONAM

REACTIONS (2)
  - Rash [Recovered/Resolved]
  - Bone pain [Not Recovered/Not Resolved]

NARRATIVE: CASE EVENT DATE: 20200311
